FAERS Safety Report 21063449 (Version 1)
Quarter: 2022Q3

REPORT INFORMATION
  Report Type: Spontaneous
  Country: KR (occurrence: None)
  Receive Date: 20220711
  Receipt Date: 20220711
  Transmission Date: 20221026
  Serious: Yes (Other)
  Sender: FDA-Public Use
  Company Number: KR-ROCHE-3132482

PATIENT
  Age: 51 Year
  Sex: Male

DRUGS (2)
  1. ATEZOLIZUMAB [Suspect]
     Active Substance: ATEZOLIZUMAB
     Indication: Hepatocellular carcinoma
     Dosage: AS 1 CYCLE, PATIENT SUBSEQUENTLY TOOK DOSE ON: 24/DEC/2020(AS 3 CYCLES), 02/APR/2021 (AS 6 CYCLES)
     Route: 065
     Dates: start: 20201110
  2. BEVACIZUMAB [Suspect]
     Active Substance: BEVACIZUMAB
     Indication: Hepatocellular carcinoma
     Dosage: AS 1 CYCLE, PATIENT SUBSEQUENTLY TOOK DOSE ON: 24/DEC/2020(AS 3 CYCLES), 02/APR/2021 (AS 6 CYCLES)
     Route: 065
     Dates: start: 20201110

REACTIONS (2)
  - Haematemesis [Unknown]
  - Epistaxis [Unknown]

NARRATIVE: CASE EVENT DATE: 20210301
